FAERS Safety Report 8425762 (Version 4)
Quarter: 2014Q2

REPORT INFORMATION
  Report Type: Report from Study
  Country: US (occurrence: US)
  Receive Date: 20120224
  Receipt Date: 20140626
  Transmission Date: 20141212
  Serious: Yes (Hospitalization)
  Sender: FDA-Public Use
  Company Number: US-ACTELION-A-NJ2012-61302

PATIENT
  Age: 73 Year
  Sex: Female

DRUGS (2)
  1. TRACLEER [Suspect]
     Indication: PULMONARY ARTERIAL HYPERTENSION
     Dosage: UNK
     Route: 048
     Dates: start: 20091215
  2. ARANESP [Concomitant]

REACTIONS (7)
  - Air embolism [Unknown]
  - Renal disorder [Unknown]
  - Cellulitis [Unknown]
  - Transfusion [Unknown]
  - Decubitus ulcer [Unknown]
  - Dyspnoea [Unknown]
  - Multiple allergies [Unknown]
